FAERS Safety Report 5081438-9 (Version None)
Quarter: 2006Q3

REPORT INFORMATION
  Report Type: 
  Country: None (occurrence: None)
  Receive Date: 20060720
  Receipt Date: 20050902
  Transmission Date: 20061208
  Serious: Yes (Hospitalization, Other)
  Sender: FDA-Public Use
  Company Number: 2005124549

PATIENT
  Age: 72 Year
  Sex: Female

DRUGS (1)
  1. CELEBREX [Suspect]
     Indication: ANALGESIC EFFECT
     Dosage: ORAL
     Route: 048

REACTIONS (2)
  - CEREBROVASCULAR ACCIDENT [None]
  - MYOCARDIAL INFARCTION [None]
